FAERS Safety Report 12287841 (Version 2)
Quarter: 2016Q2

REPORT INFORMATION
  Report Type: Report from Study
  Country: JP (occurrence: JP)
  Receive Date: 20160420
  Receipt Date: 20160428
  Transmission Date: 20160815
  Serious: Yes (Death, Other)
  Sender: FDA-Public Use
  Company Number: JP-BRISTOL-MYERS SQUIBB COMPANY-BMS-2016-028795

PATIENT
  Age: 52 Year
  Sex: Male

DRUGS (4)
  1. NIVOLUMAB [Suspect]
     Active Substance: NIVOLUMAB
     Dosage: 150 MG, QD
     Route: 041
     Dates: start: 20160329, end: 20160329
  2. NIVOLUMAB [Suspect]
     Active Substance: NIVOLUMAB
     Dosage: 150 MG, QD
     Route: 041
  3. NIVOLUMAB [Suspect]
     Active Substance: NIVOLUMAB
     Indication: NON-SMALL CELL LUNG CANCER
     Dosage: 150 MG, QD
     Route: 041
     Dates: start: 20160216, end: 20160216
  4. NIVOLUMAB [Suspect]
     Active Substance: NIVOLUMAB
     Dosage: 150 MG, QD
     Route: 041
     Dates: start: 201603, end: 201603

REACTIONS (1)
  - Adrenal insufficiency [Fatal]

NARRATIVE: CASE EVENT DATE: 20160410
